FAERS Safety Report 13216025 (Version 1)
Quarter: 2017Q1

REPORT INFORMATION
  Report Type: Spontaneous
  Country: GB (occurrence: GB)
  Receive Date: 20170209
  Receipt Date: 20170209
  Transmission Date: 20170428
  Serious: Yes (Other)
  Sender: FDA-Public Use
  Company Number: GB-INTERNATIONAL MEDICATION SYSTEMS, LIMITED-1062944

PATIENT
  Weight: 6 kg

DRUGS (1)
  1. ADRENALINE [Suspect]
     Active Substance: EPINEPHRINE
     Indication: BLOOD PRESSURE MEASUREMENT

REACTIONS (4)
  - Erythema [Unknown]
  - Compartment syndrome [Unknown]
  - Vasoconstriction [Unknown]
  - Poor peripheral circulation [Unknown]
